FAERS Safety Report 10408125 (Version 1)
Quarter: 2014Q3

REPORT INFORMATION
  Report Type: Spontaneous
  Country: US (occurrence: US)
  Receive Date: 20140826
  Receipt Date: 20140826
  Transmission Date: 20150326
  Serious: Yes (Other)
  Sender: FDA-Public Use
  Company Number: US-AMGEN-USASP2014063973

PATIENT
  Age: 54 Year
  Sex: Female

DRUGS (1)
  1. ENBREL [Suspect]
     Active Substance: ETANERCEPT
     Indication: RHEUMATOID ARTHRITIS
     Dosage: 50 MG, QWK
     Route: 065

REACTIONS (6)
  - Mobility decreased [Not Recovered/Not Resolved]
  - Endoscopy gastrointestinal [Recovered/Resolved]
  - Oropharyngeal pain [Not Recovered/Not Resolved]
  - Hypotension [Unknown]
  - Asthenia [Not Recovered/Not Resolved]
  - Bezoar [Recovered/Resolved]

NARRATIVE: CASE EVENT DATE: 20140819
